FAERS Safety Report 5597008-X (Version None)
Quarter: 2007Q4

REPORT INFORMATION
  Report Type: 
  Country: None (occurrence: None)
  Receive Date: 20071220
  Receipt Date: 20070122
  Transmission Date: 20080405
  Serious: Yes (Life-Threatening, Hospitalization)
  Sender: FDA-Public Use
  Company Number: 257381

PATIENT
  Age: 53 Year
  Sex: Male

DRUGS (4)
  1. NOVOLOG MIX 70/30 (INSULIN ASPART) SUSPENSION FOR INJECTION, 100U/MI [Suspect]
     Indication: INSULIN-REQUIRING TYPE II DIABETES MELLITUS
     Dosage: SUBCUTANEOUS
     Route: 058
     Dates: start: 20030101, end: 20060924
  2. ASPIRIN [Concomitant]
  3. HYZAAR [Concomitant]
  4. PRILOSEC /00661201/ (OMEPRAZOLE) [Concomitant]

REACTIONS (1)
  - ANAPHYLACTIC REACTION [None]
